FAERS Safety Report 20922462 (Version 1)
Quarter: 2022Q2

REPORT INFORMATION
  Report Type: Spontaneous
  Country: US (occurrence: US)
  Receive Date: 20220607
  Receipt Date: 20220607
  Transmission Date: 20220721
  Serious: Yes (Other)
  Sender: FDA-Public Use
  Company Number: US-LUPIN PHARMACEUTICALS INC.-2022-08118

PATIENT
  Age: 43 Year
  Sex: Female

DRUGS (6)
  1. CALCIUM [Suspect]
     Active Substance: CALCIUM
     Indication: Post procedural hypoparathyroidism
     Dosage: 1000 MILLIGRAM, BID
     Route: 065
  2. VITAMIN D2 [Suspect]
     Active Substance: ERGOCALCIFEROL
     Indication: Post procedural hypoparathyroidism
     Dosage: 50000 INTERNATIONAL UNIT, WEEKLY
     Route: 065
  3. FORTEO [Concomitant]
     Active Substance: TERIPARATIDE
     Indication: Post procedural hypoparathyroidism
     Dosage: 20 MICROGRAM, QD
     Route: 065
  4. NATPARA (PARATHYROID HORMONE) [Concomitant]
     Active Substance: PARATHYROID HORMONE
     Indication: Post procedural hypoparathyroidism
     Dosage: 100 MICROGRAM, QD
     Route: 058
  5. CALCITRIOL [Concomitant]
     Active Substance: CALCITRIOL
     Indication: Post procedural hypoparathyroidism
     Dosage: 20 MICROGRAM, QD
     Route: 065
  6. VITAMIN D3 [Concomitant]
     Active Substance: CHOLECALCIFEROL
     Indication: Post procedural hypoparathyroidism
     Dosage: 5000 INTERNATIONAL UNIT, QD
     Route: 065

REACTIONS (2)
  - Drug ineffective for unapproved indication [Unknown]
  - Off label use [Unknown]
